FAERS Safety Report 18496623 (Version 1)
Quarter: 2020Q4

REPORT INFORMATION
  Report Type: Spontaneous
  Country: US (occurrence: US)
  Receive Date: 20201112
  Receipt Date: 20201112
  Transmission Date: 20210114
  Serious: No
  Sender: FDA-Public Use
  Company Number: US-TEVA-2020-US-1847996

PATIENT
  Age: 65 Year
  Sex: Female

DRUGS (1)
  1. TEVA^S TRAZODONE HYDROCHLORIDE [Suspect]
     Active Substance: TRAZODONE HYDROCHLORIDE
     Indication: INSOMNIA
     Dosage: SHE HAS BEEN TAKING HALF
     Route: 065

REACTIONS (3)
  - Off label use [Unknown]
  - Thirst [Not Recovered/Not Resolved]
  - Drug ineffective [Unknown]
